FAERS Safety Report 4726575-0 (Version None)
Quarter: 2005Q3

REPORT INFORMATION
  Report Type: 
  Country: None (occurrence: None)
  Receive Date: 20050726
  Receipt Date: 20050713
  Transmission Date: 20060218
  Serious: Yes (Death, Other)
  Sender: FDA-Public Use
  Company Number: 2005104208

PATIENT
  Age: 69 Year
  Sex: Male

DRUGS (2)
  1. PREDNISONE [Suspect]
     Indication: CHONDRITIS
     Dosage: 1.2 MG/KG
  2. METHYLPREDNISOLONE [Suspect]
     Indication: PNEUMONITIS

REACTIONS (8)
  - BACTERIAL INFECTION [None]
  - BLOOD BETA-D-GLUCAN INCREASED [None]
  - BLOOD LACTATE DEHYDROGENASE INCREASED [None]
  - LUNG INFECTION PSEUDOMONAL [None]
  - PNEUMOCYSTIS JIROVECI PNEUMONIA [None]
  - PNEUMONIA BACTERIAL [None]
  - PNEUMONITIS [None]
  - STAPHYLOCOCCAL INFECTION [None]
